FAERS Safety Report 12935119 (Version 3)
Quarter: 2016Q4

REPORT INFORMATION
  Report Type: Spontaneous
  Country: CA (occurrence: CA)
  Receive Date: 20161114
  Receipt Date: 20161225
  Transmission Date: 20170207
  Serious: Yes (Other)
  Sender: FDA-Public Use
  Company Number: CA-ROCHE-1853260

PATIENT
  Age: 46 Year
  Sex: Female

DRUGS (1)
  1. RITUXAN [Suspect]
     Active Substance: RITUXIMAB
     Indication: RHEUMATOID ARTHRITIS
     Dosage: RECEIVED 2 DOSES
     Route: 042
     Dates: end: 20160630

REACTIONS (14)
  - Neck pain [Unknown]
  - Drug effect decreased [Unknown]
  - Hypertension [Unknown]
  - Insomnia [Unknown]
  - Joint swelling [Unknown]
  - Musculoskeletal pain [Unknown]
  - Fibromyalgia [Unknown]
  - Arthralgia [Unknown]
  - C-reactive protein increased [Unknown]
  - Peripheral swelling [Unknown]
  - Fatigue [Unknown]
  - Back pain [Unknown]
  - Disability [Unknown]
  - Pain in extremity [Unknown]

NARRATIVE: CASE EVENT DATE: 2010
